FAERS Safety Report 9914495 (Version 1)
Quarter: 2014Q1

REPORT INFORMATION
  Report Type: Spontaneous
  Country: US (occurrence: None)
  Receive Date: 20140219
  Receipt Date: 20140219
  Transmission Date: 20141002
  Serious: Yes (Life-Threatening, Hospitalization, Disabling)
  Sender: FDA-Public Use
  Company Number: None

PATIENT
  Age: 43 Year
  Sex: Female
  Weight: 58.97 kg

DRUGS (12)
  1. MINASTRIN 24 FE [Suspect]
     Indication: MENSTRUAL CYCLE MANAGEMENT
     Dosage: 1 PILL
     Route: 048
     Dates: start: 20131115, end: 20140205
  2. MINASTRIN 24 FE [Suspect]
     Indication: MIGRAINE
     Dosage: 1 PILL
     Route: 048
     Dates: start: 20131115, end: 20140205
  3. GIANVI [Suspect]
     Indication: MENSTRUAL CYCLE MANAGEMENT
     Dosage: 1 PILL
     Route: 048
  4. GIANVI [Suspect]
     Indication: MIGRAINE
     Dosage: 1 PILL
     Route: 048
  5. FIORICET [Concomitant]
  6. SERTRALINE [Concomitant]
  7. AXERT [Concomitant]
  8. HYDROCODONE [Concomitant]
  9. CLARITIN [Concomitant]
  10. B-COMPLEX [Concomitant]
  11. MUCINEX PE [Concomitant]
  12. CALCIUM [Concomitant]

REACTIONS (2)
  - Cerebral venous thrombosis [None]
  - Convulsion [None]
